FAERS Safety Report 16134665 (Version 3)
Quarter: 2019Q2

REPORT INFORMATION
  Report Type: Spontaneous
  Country: US (occurrence: US)
  Receive Date: 20190331
  Receipt Date: 20190415
  Transmission Date: 20190711
  Serious: No
  Sender: FDA-Public Use
  Company Number: US-JNJFOC-20190312591

PATIENT
  Sex: Male
  Weight: 80 kg

DRUGS (2)
  1. MENS ROGAINE EXTRA STRENGTH [Suspect]
     Active Substance: MINOXIDIL
     Indication: ALOPECIA
     Route: 061
     Dates: start: 201901, end: 2019
  2. MENS ROGAINE EXTRA STRENGTH [Suspect]
     Active Substance: MINOXIDIL
     Route: 061

REACTIONS (4)
  - Skin irritation [Recovered/Resolved]
  - Pruritus [Recovering/Resolving]
  - Erythema [Recovering/Resolving]
  - Skin exfoliation [Recovering/Resolving]

NARRATIVE: CASE EVENT DATE: 2019
